FAERS Safety Report 23513767 (Version 3)
Quarter: 2024Q1

REPORT INFORMATION
  Report Type: Spontaneous
  Country: US (occurrence: US)
  Receive Date: 20240212
  Receipt Date: 20240301
  Transmission Date: 20240410
  Serious: Yes (Other)
  Sender: FDA-Public Use
  Company Number: US-AMGEN-USASP2024027064

PATIENT
  Age: 71 Year
  Sex: Female
  Weight: 57 kg

DRUGS (5)
  1. NPLATE [Suspect]
     Active Substance: ROMIPLOSTIM
     Indication: Thrombocytopenia
     Dosage: 1 MICROGRAM, QWK
     Route: 058
     Dates: start: 20231102
  2. NPLATE [Suspect]
     Active Substance: ROMIPLOSTIM
     Dosage: 3 MICROGRAM, QWK
     Route: 058
  3. NPLATE [Suspect]
     Active Substance: ROMIPLOSTIM
     Dosage: 5 MICROGRAM, QWK
     Route: 058
  4. NPLATE [Suspect]
     Active Substance: ROMIPLOSTIM
     Dosage: 7 MICROGRAM, QWK
     Route: 058
     Dates: start: 202312
  5. NPLATE [Suspect]
     Active Substance: ROMIPLOSTIM
     Dosage: VARIED 1 MICROGRAM TO 7 MICROGRAM
     Route: 058
     Dates: start: 20240211

REACTIONS (3)
  - Thrombocytopenia [Not Recovered/Not Resolved]
  - Megakaryocytes decreased [Unknown]
  - Therapy non-responder [Unknown]

NARRATIVE: CASE EVENT DATE: 20240201
